FAERS Safety Report 5778398-1 (Version None)
Quarter: 2008Q2

REPORT INFORMATION
  Report Type: 
  Country: None (occurrence: None)
  Receive Date: 20080618
  Receipt Date: 20080618
  Transmission Date: 20081010
  Serious: No
  Sender: FDA-Public Use
  Company Number: None

PATIENT
  Age: 63 Year
  Sex: Male
  Weight: 86.3 kg

DRUGS (1)
  1. BUTORPHANOL [Suspect]
     Indication: PRURITUS
     Dosage: 0.5 MG QID IV
     Route: 042
     Dates: start: 20080407, end: 20080407

REACTIONS (4)
  - FLUSHING [None]
  - HALLUCINATION [None]
  - NAUSEA [None]
  - VOMITING [None]
